FAERS Safety Report 9975411 (Version 1)
Quarter: 2014Q1

REPORT INFORMATION
  Report Type: Report from Study
  Country: US (occurrence: US)
  Receive Date: 20140306
  Receipt Date: 20140306
  Transmission Date: 20141002
  Serious: No
  Sender: FDA-Public Use
  Company Number: US-ABBVIE-13P-163-1158277-00

PATIENT
  Age: 53 Year
  Sex: Male

DRUGS (5)
  1. HUMIRA [Suspect]
     Indication: CROHN^S DISEASE
     Dates: start: 20130731
  2. PENTASA [Concomitant]
     Indication: CROHN^S DISEASE
     Dosage: 2 TABETS
  3. COLESTID [Concomitant]
     Indication: CROHN^S DISEASE
  4. CLARITIN [Concomitant]
     Indication: HYPERSENSITIVITY
  5. PRILOSEC [Concomitant]
     Indication: GASTROOESOPHAGEAL REFLUX DISEASE

REACTIONS (6)
  - Arthropod bite [Not Recovered/Not Resolved]
  - Laceration [Recovered/Resolved]
  - Wound complication [Recovered/Resolved]
  - Pruritus [Recovering/Resolving]
  - Pruritus [Recovered/Resolved]
  - Rash macular [Recovering/Resolving]
